FAERS Safety Report 8141386-4 (Version None)
Quarter: 2012Q1

REPORT INFORMATION
  Report Type: 
  Country: None (occurrence: None)
  Receive Date: 20120216
  Receipt Date: 20120207
  Transmission Date: 20120608
  Serious: Yes (Other)
  Sender: FDA-Public Use
  Company Number: PHHY2012JP006960

PATIENT
  Age: 29 Year
  Sex: Male

DRUGS (3)
  1. PHENYTOIN [Suspect]
     Indication: EPILEPSY
     Dosage: 400 MG, DAY
     Dates: start: 20090129
  2. TEGRETOL [Suspect]
     Indication: CONVULSION
     Dosage: 400 MG, DAY
     Dates: start: 20090129
  3. VALPROATE SODIUM [Suspect]
     Indication: EPILEPSY
     Dosage: 1200 MG, DAY
     Dates: start: 20090129

REACTIONS (3)
  - HEPATIC FUNCTION ABNORMAL [None]
  - ANTICONVULSANT DRUG LEVEL BELOW THERAPEUTIC [None]
  - CONVULSION [None]
